FAERS Safety Report 4955169-7 (Version None)
Quarter: 2006Q1

REPORT INFORMATION
  Report Type: 
  Country: None (occurrence: None)
  Receive Date: 20060328
  Receipt Date: 20060314
  Transmission Date: 20060701
  Serious: Yes (Other)
  Sender: FDA-Public Use
  Company Number: PHEH2006US03383

PATIENT
  Age: 61 Year
  Sex: Female

DRUGS (3)
  1. SINEMET [Concomitant]
     Indication: PARKINSON'S DISEASE
     Dosage: 25/100 (1.5 TABS 5-6 QD)
     Route: 048
     Dates: start: 19970101
  2. REQUIP [Concomitant]
     Indication: PARKINSON'S DISEASE
     Dosage: 3 MG, TID
     Dates: start: 19980101
  3. COMTAN [Suspect]
     Indication: PARKINSON'S DISEASE
     Dosage: 200 MG, QD
     Route: 048
     Dates: start: 20050601

REACTIONS (2)
  - ANXIETY [None]
  - HEART RATE INCREASED [None]
